FAERS Safety Report 11860410 (Version 4)
Quarter: 2016Q1

REPORT INFORMATION
  Report Type: Report from Study
  Country: US (occurrence: US)
  Receive Date: 20151222
  Receipt Date: 20160114
  Transmission Date: 20160526
  Serious: Yes (Hospitalization, Other)
  Sender: FDA-Public Use
  Company Number: US-GILEAD-2015-0189253

PATIENT
  Age: 46 Year
  Sex: Female
  Weight: 99.77 kg

DRUGS (6)
  1. ADCIRCA [Suspect]
     Active Substance: TADALAFIL
     Indication: PRODUCT USED FOR UNKNOWN INDICATION
     Route: 065
  2. AMBRISENTAN [Suspect]
     Active Substance: AMBRISENTAN
     Indication: PRODUCT USED FOR UNKNOWN INDICATION
     Dosage: 10 MG, QD
     Route: 065
     Dates: start: 20140815
  3. REMODULIN [Suspect]
     Active Substance: TREPROSTINIL
     Indication: PULMONARY HYPERTENSION
     Dosage: 0.052 ML/HR
     Route: 065
  4. REMODULIN [Suspect]
     Active Substance: TREPROSTINIL
     Dosage: 0.021 UG/KG, UNK
     Dates: start: 20150806
  5. REMODULIN [Suspect]
     Active Substance: TREPROSTINIL
     Dosage: 0.024 ML/HR
     Route: 065
     Dates: start: 20151215
  6. REMODULIN [Suspect]
     Active Substance: TREPROSTINIL
     Dosage: 0.026 ML/HR
     Route: 065

REACTIONS (6)
  - Fatigue [Unknown]
  - Pneumothorax [Unknown]
  - Incorrect drug administration rate [Unknown]
  - Dyspnoea [Unknown]
  - Asthenia [Unknown]
  - Brain natriuretic peptide increased [Unknown]
